FAERS Safety Report 4500687-9 (Version None)
Quarter: 2004Q4

REPORT INFORMATION
  Report Type: 
  Country: None (occurrence: None)
  Receive Date: 20041109
  Receipt Date: 20041021
  Transmission Date: 20050328
  Serious: Yes (Hospitalization, Other)
  Sender: FDA-Public Use
  Company Number: USA040874473

PATIENT
  Age: 71 Year
  Sex: Female

DRUGS (8)
  1. FORTEO [Suspect]
     Indication: OSTEOPOROSIS
     Dates: start: 20040501
  2. TENORMIN (ATENOLOL EG) [Concomitant]
  3. ACIPHEX [Concomitant]
  4. VITAMIN E [Concomitant]
  5. MULTI-VITAMIN [Concomitant]
  6. PENTASA [Concomitant]
  7. TUMS (CALCIUM CARBONATE) [Concomitant]
  8. ARICEPT [Concomitant]

REACTIONS (13)
  - CARDIAC FAILURE [None]
  - CIRCULATORY COLLAPSE [None]
  - CRYING [None]
  - DIZZINESS [None]
  - EYE MOVEMENT DISORDER [None]
  - FALL [None]
  - FEELING COLD [None]
  - HALLUCINATION [None]
  - HEAD INJURY [None]
  - LOSS OF CONSCIOUSNESS [None]
  - NAUSEA [None]
  - PALLOR [None]
  - PHARMACEUTICAL PRODUCT COMPLAINT [None]
